FAERS Safety Report 10737031 (Version 6)
Quarter: 2015Q2

REPORT INFORMATION
  Report Type: Spontaneous
  Country: US (occurrence: US)
  Receive Date: 20150126
  Receipt Date: 20150506
  Transmission Date: 20150821
  Serious: Yes (Hospitalization, Other)
  Sender: FDA-Public Use
  Company Number: US-ACTELION-A-NJ2014-105745

PATIENT
  Age: 50 Year
  Sex: Female

DRUGS (4)
  1. TRACLEER [Suspect]
     Active Substance: BOSENTAN\BOSENTAN MONOHYDRATE
     Indication: PULMONARY ARTERIAL HYPERTENSION
     Dosage: UNK
     Route: 048
  2. VENTAVIS [Suspect]
     Active Substance: ILOPROST
     Indication: PULMONARY ARTERIAL HYPERTENSION
     Dosage: 5 MCG, 5-9 TIMES DAILY
     Route: 055
  3. TRACLEER [Suspect]
     Active Substance: BOSENTAN\BOSENTAN MONOHYDRATE
     Dosage: UNK
     Route: 048
  4. REVATIO [Concomitant]
     Active Substance: SILDENAFIL CITRATE

REACTIONS (18)
  - Deep vein thrombosis [Unknown]
  - Fatigue [Unknown]
  - Seizure [Unknown]
  - Chest pain [Unknown]
  - Malaise [Unknown]
  - Cough [Unknown]
  - Fall [Unknown]
  - Head injury [Unknown]
  - Pulmonary arterial hypertension [Unknown]
  - Syncope [Unknown]
  - Influenza [Unknown]
  - Pyrexia [Unknown]
  - Asthenia [Unknown]
  - Gastric disorder [Unknown]
  - Oedema peripheral [Unknown]
  - Oropharyngeal pain [Unknown]
  - Decreased appetite [Unknown]
  - Peripheral venous disease [Unknown]

NARRATIVE: CASE EVENT DATE: 201411
